FAERS Safety Report 5748113-6 (Version None)
Quarter: 2008Q2

REPORT INFORMATION
  Report Type: 
  Country: None (occurrence: None)
  Receive Date: 20080521
  Receipt Date: 20080506
  Transmission Date: 20081010
  Serious: Yes (Death, Hospitalization)
  Sender: FDA-Public Use
  Company Number: WAES 0805AUS00087

PATIENT
  Age: 66 Year
  Sex: Male

DRUGS (1)
  1. ISENTRESS [Suspect]
     Indication: HIV INFECTION
     Dosage: 400 MG/BID, PO
     Route: 048
     Dates: start: 20070528, end: 20071221

REACTIONS (16)
  - ACUTE CORONARY SYNDROME [None]
  - ACUTE PULMONARY OEDEMA [None]
  - ANAEMIA [None]
  - CARDIAC FAILURE [None]
  - DIVERTICULUM INTESTINAL [None]
  - GASTROINTESTINAL HAEMORRHAGE [None]
  - GENERAL PHYSICAL HEALTH DETERIORATION [None]
  - HAEMODIALYSIS [None]
  - LOWER RESPIRATORY TRACT INFECTION [None]
  - MALAISE [None]
  - MOBILITY DECREASED [None]
  - OEDEMA PERIPHERAL [None]
  - OESOPHAGEAL CANDIDIASIS [None]
  - PLEURAL EFFUSION [None]
  - PULMONARY HYPERTENSION [None]
  - RESPIRATORY DISTRESS [None]
